FAERS Safety Report 7731395-9 (Version None)
Quarter: 2011Q3

REPORT INFORMATION
  Report Type: 
  Country: None (occurrence: None)
  Receive Date: 20110906
  Receipt Date: 20110831
  Transmission Date: 20111222
  Serious: Yes (Other)
  Sender: FDA-Public Use
  Company Number: DE-PFIZER INC-2011096666

PATIENT
  Age: 28 Year
  Sex: Male
  Weight: 97.7 kg

DRUGS (2)
  1. LYRICA [Suspect]
     Indication: ANXIETY DISORDER
     Dosage: UNK
     Dates: start: 20101101, end: 20110401
  2. LYRICA [Suspect]
     Dosage: 150 MG, 2X/DAY
     Dates: start: 20110531

REACTIONS (2)
  - GYNAECOMASTIA [None]
  - BLOOD PROLACTIN INCREASED [None]
